FAERS Safety Report 13902945 (Version 2)
Quarter: 2018Q2

REPORT INFORMATION
  Report Type: Report from Study
  Country: BE (occurrence: BE)
  Receive Date: 20170824
  Receipt Date: 20180420
  Transmission Date: 20180711
  Serious: Yes (Death, Life-Threatening, Hospitalization, Disabling, Other)
  Sender: FDA-Public Use
  Company Number: BE-ASTRAZENECA-2017SE25111

PATIENT
  Age: 78 Year
  Sex: Male

DRUGS (7)
  1. MOVICOL [Concomitant]
     Active Substance: POLYETHYLENE GLYCOL 3350\POTASSIUM CHLORIDE\SODIUM BICARBONATE\SODIUM CHLORIDE
     Indication: CONSTIPATION
     Dosage: 1.0DF AS REQUIRED
     Route: 048
     Dates: start: 20170215
  2. ASAFLOW [Concomitant]
     Active Substance: ASPIRIN
     Indication: CARDIOVASCULAR EVENT PROPHYLAXIS
     Route: 048
  3. L-THYROXINE [Concomitant]
     Active Substance: LEVOTHYROXINE
     Indication: HYPOTHYROIDISM
     Route: 048
  4. CIPROFLOXACIN. [Concomitant]
     Active Substance: CIPROFLOXACIN
     Indication: URINARY TRACT INFECTION
     Route: 048
     Dates: start: 20170303, end: 20170308
  5. MEDI4736 [Suspect]
     Active Substance: DURVALUMAB
     Indication: BLADDER TRANSITIONAL CELL CARCINOMA
     Route: 042
     Dates: start: 20170206, end: 20170206
  6. DAFALGAN [Concomitant]
     Active Substance: ACETAMINOPHEN
     Indication: NECK PAIN
     Dosage: 500.0MG AS REQUIRED
     Route: 048
     Dates: start: 20170302, end: 20170308
  7. AGIOLAX [Concomitant]
     Indication: CONSTIPATION
     Dosage: 3.0DF AS REQUIRED
     Route: 048
     Dates: start: 20170215, end: 20170509

REACTIONS (5)
  - Transaminases increased [Recovered/Resolved]
  - Pneumonia [Not Recovered/Not Resolved]
  - Myocarditis [Not Recovered/Not Resolved]
  - Cardiac arrest [Recovered/Resolved]
  - Diaphragmatic paralysis [Not Recovered/Not Resolved]

NARRATIVE: CASE EVENT DATE: 20170306
